FAERS Safety Report 9689349 (Version 4)
Quarter: 2014Q2

REPORT INFORMATION
  Report Type: Spontaneous
  Country: US (occurrence: US)
  Receive Date: 20131114
  Receipt Date: 20140418
  Transmission Date: 20141212
  Serious: Yes (Hospitalization, Other)
  Sender: FDA-Public Use
  Company Number: US-PFIZER INC-2013324663

PATIENT
  Age: 45 Year
  Sex: Male
  Weight: 71.2 kg

DRUGS (3)
  1. GEODON [Suspect]
     Indication: DEPRESSION
     Dosage: 40 MG, 2X/DAY
     Dates: start: 2004
  2. GEODON [Interacting]
     Indication: OBSESSIVE-COMPULSIVE DISORDER
     Dosage: 40 MG, 1X/DAY
     Dates: start: 201403, end: 201403
  3. GEODON [Interacting]
     Dosage: 40 MG, 2X/DAY
     Dates: start: 201403

REACTIONS (15)
  - Diverticulitis [Recovered/Resolved]
  - Overdose [Unknown]
  - Parkinsonism [Unknown]
  - Myocardial infarction [Unknown]
  - Dyskinesia [Unknown]
  - Food interaction [Unknown]
  - Drug dependence [Unknown]
  - Abnormal behaviour [Unknown]
  - Ulcer [Unknown]
  - Blood pressure increased [Unknown]
  - Heart rate increased [Unknown]
  - Insomnia [Unknown]
  - Activities of daily living impaired [Unknown]
  - Feeling abnormal [Unknown]
  - Depressed mood [Unknown]
